FAERS Safety Report 22237754 (Version 1)
Quarter: 2023Q2

REPORT INFORMATION
  Report Type: Spontaneous
  Country: US (occurrence: US)
  Receive Date: 20230421
  Receipt Date: 20230421
  Transmission Date: 20230722
  Serious: Yes (Hospitalization, Other)
  Sender: FDA-Public Use
  Company Number: US-SA-SAC20221223000793

PATIENT
  Age: 44 Year
  Sex: Male

DRUGS (2)
  1. DUPIXENT [Suspect]
     Active Substance: DUPILUMAB
     Indication: Nasal polyps
     Dosage: 300 MG, OTHER
     Route: 058
  2. OXYCODONE [Concomitant]
     Active Substance: OXYCODONE
     Indication: Postoperative analgesia

REACTIONS (7)
  - Road traffic accident [Unknown]
  - Limb injury [Unknown]
  - Chest injury [Unknown]
  - Back injury [Unknown]
  - Spinal column injury [Unknown]
  - Metabolic surgery [Unknown]
  - Arthropathy [Unknown]

NARRATIVE: CASE EVENT DATE: 20221220
